FAERS Safety Report 4908146-6 (Version None)
Quarter: 2006Q1

REPORT INFORMATION
  Report Type: 
  Country: None (occurrence: None)
  Receive Date: 20060210
  Receipt Date: 20050616
  Transmission Date: 20060701
  Serious: Yes (Hospitalization, Disabling)
  Sender: FDA-Public Use
  Company Number: US-MERCK-0506USA02702

PATIENT
  Age: 59 Year
  Sex: Male
  Weight: 70 kg

DRUGS (4)
  1. VIOXX [Suspect]
     Indication: ARTHRALGIA
     Route: 048
     Dates: start: 20000901, end: 20040801
  2. VIOXX [Suspect]
     Route: 048
     Dates: start: 20000901, end: 20040801
  3. ASPIRIN [Concomitant]
     Route: 065
  4. EXCEDRIN (ACETAMINOPHEN (+) CAFFEINE) [Concomitant]
     Route: 065

REACTIONS (3)
  - ANGINA PECTORIS [None]
  - HERNIA [None]
  - MYOCARDIAL INFARCTION [None]
